FAERS Safety Report 8717863 (Version 4)
Quarter: 2012Q4

REPORT INFORMATION
  Report Type: Spontaneous
  Country: GB (occurrence: None)
  Receive Date: 20120726
  Receipt Date: 20121002
  Transmission Date: 20130627
  Serious: Yes (Life-Threatening, Other)
  Sender: FDA-Public Use
  Company Number: GGEL20120700825

PATIENT
  Age: 49 Year
  Sex: Female

DRUGS (12)
  1. TOPIRAMATE [Suspect]
     Indication: PSYCHOSIS
     Dosage: ORAL
     Route: 048
     Dates: start: 2007, end: 20120121
  2. TOPIRAMATE [Suspect]
     Indication: SCHIZOPHRENIA
     Dosage: ORAL
     Route: 048
     Dates: start: 2007, end: 20120121
  3. ZISPIN [Suspect]
     Indication: DEPRESSIVE SYMPTOM
     Dosage: ORAL
     Route: 048
     Dates: start: 2006, end: 20120121
  4. ZISPIN [Suspect]
     Indication: DEPRESSIVE SYMPTOM
  5. ZISPIN [Suspect]
     Indication: DEPRESSIVE SYMPTOM
  6. CLOZARIL (CLOZAPINE) [Suspect]
     Indication: SCHIZOPHRENIA
     Dosage: ORAL
     Route: 048
     Dates: start: 20120112, end: 20120117
  7. CLOZARIL (CLOZAPINE) [Suspect]
     Indication: SCHIZOPHRENIA
     Dosage: ORAL
     Route: 048
     Dates: start: 20060815, end: 20120109
  8. CLOZARIL (CLOZAPINE) [Suspect]
     Indication: SCHIZOPHRENIA
     Route: 048
  9. CLOZARIL (CLOZAPINE) [Suspect]
     Indication: SCHIZOPHRENIA
     Route: 048
  10. AMOXICILLIN (AMOXICILLIN) [Concomitant]
  11. ZOPICLONE (ZOPICLONE) [Concomitant]
  12. QUETIAPINE FUMARATE (QUETIAPINE FUMARATE) [Concomitant]

REACTIONS (14)
  - Toothache [None]
  - White blood cell count decreased [None]
  - Road traffic accident [None]
  - Eosinophil count decreased [None]
  - Platelet count decreased [None]
  - Tooth infection [None]
  - Scratch [None]
  - Multiple injuries [None]
  - Infection susceptibility increased [None]
  - Off label use [None]
  - Laceration [None]
  - Implant site effusion [None]
  - White blood cell count decreased [None]
  - Neutropenia [None]
